FAERS Safety Report 5733016-3 (Version None)
Quarter: 2008Q2

REPORT INFORMATION
  Report Type: 
  Country: None (occurrence: None)
  Receive Date: 20080509
  Receipt Date: 20080428
  Transmission Date: 20081010
  Serious: Yes (Other)
  Sender: FDA-Public Use
  Company Number: HQWYE628226SEP05

PATIENT
  Sex: Female

DRUGS (3)
  1. PREMPRO [Suspect]
     Indication: MENOPAUSAL SYMPTOMS
     Dosage: 0.625 MG (FREQUENCY UNSPECIFIED)
     Dates: start: 19960101, end: 20000101
  2. PROVERA [Suspect]
     Indication: MENOPAUSAL SYMPTOMS
     Dosage: 2.5 MG (FREQUENCY UNSPECIFIED)
     Dates: end: 19860101
  3. PREMARIN [Suspect]
     Indication: MENOPAUSAL SYMPTOMS
     Dosage: 0.625 MG (FREQUENCY UNSPECIFIED)
     Dates: start: 19830101, end: 19890101

REACTIONS (1)
  - CONTRALATERAL BREAST CANCER [None]
